FAERS Safety Report 22035372 (Version 2)
Quarter: 2023Q1

REPORT INFORMATION
  Report Type: Report from Study
  Country: ES (occurrence: None)
  Receive Date: 20230224
  Receipt Date: 20230307
  Transmission Date: 20230418
  Serious: Yes (Death, Hospitalization)
  Sender: FDA-Public Use
  Company Number: ES-Eisai Medical Research-EC-2023-132488

PATIENT
  Age: 82 Year
  Sex: Male
  Weight: 86.8 kg

DRUGS (13)
  1. LECANEMAB [Suspect]
     Active Substance: LECANEMAB
     Indication: Dementia Alzheimer^s type
     Dosage: PLACEBO
     Route: 041
     Dates: start: 20200213, end: 20210730
  2. LECANEMAB [Suspect]
     Active Substance: LECANEMAB
     Dosage: OPEN LABEL
     Route: 041
     Dates: start: 20210820, end: 20230104
  3. PREDNISONE [Concomitant]
     Active Substance: PREDNISONE
  4. OMEPRAZOLE [Concomitant]
     Active Substance: OMEPRAZOLE
  5. ACETAMINOPHEN [Concomitant]
     Active Substance: ACETAMINOPHEN
  6. RIVASTIGMINE [Concomitant]
     Active Substance: RIVASTIGMINE
  7. MEMANTINE [Concomitant]
     Active Substance: MEMANTINE
  8. CALCIUM CARBONATE\CHOLECALCIFEROL [Concomitant]
     Active Substance: CALCIUM CARBONATE\CHOLECALCIFEROL
  9. EDOXABAN TOSYLATE [Concomitant]
     Active Substance: EDOXABAN TOSYLATE
  10. NEOMYX [Concomitant]
     Dosage: 0.5/0.4 MG
  11. METAMIZOLE [Concomitant]
     Active Substance: METAMIZOLE
  12. BISOPROLOL [Concomitant]
     Active Substance: BISOPROLOL
  13. CHOLECALCIFEROL [Concomitant]
     Active Substance: CHOLECALCIFEROL

REACTIONS (1)
  - Cardiac failure [Fatal]

NARRATIVE: CASE EVENT DATE: 20230119
